FAERS Safety Report 4293732-X (Version None)
Quarter: 2004Q1

REPORT INFORMATION
  Report Type: 
  Country: None (occurrence: None)
  Receive Date: 20040210
  Receipt Date: 20040210
  Transmission Date: 20041129
  Serious: Yes (Other)
  Sender: FDA-Public Use
  Company Number: None

PATIENT
  Age: 74 Year
  Sex: Female
  Weight: 57.1532 kg

DRUGS (3)
  1. ADVAIR DISKUS 250/50 [Suspect]
     Indication: LUNG DISORDER
     Dosage: ONE TIME BY MOUTH TWICE DAILY
     Dates: start: 20021230, end: 20030213
  2. ADVAIR DISKUS 250/50 [Suspect]
     Indication: SCAR
     Dosage: ONE TIME BY MOUTH TWICE DAILY
     Dates: start: 20021230, end: 20030213
  3. SEREVENT [Suspect]
     Dosage: ONE TIME BY MOUTH TWICE DAILY
     Dates: start: 20030829, end: 20031017

REACTIONS (8)
  - DENTAL CARIES [None]
  - DEVICE FAILURE [None]
  - DRUG EFFECT DECREASED [None]
  - LARYNGITIS [None]
  - MUCOSAL HAEMORRHAGE [None]
  - PHARYNGOLARYNGEAL PAIN [None]
  - THROAT IRRITATION [None]
  - TOOTH LOSS [None]
